FAERS Safety Report 9931926 (Version 1)
Quarter: 2014Q1

REPORT INFORMATION
  Report Type: Spontaneous
  Country: US (occurrence: US)
  Receive Date: 20140228
  Receipt Date: 20140228
  Transmission Date: 20141002
  Serious: Yes (Other)
  Sender: FDA-Public Use
  Company Number: US-JNJFOC-20140214988

PATIENT
  Age: 50 Year
  Sex: Female

DRUGS (1)
  1. XARELTO [Suspect]
     Indication: DEEP VEIN THROMBOSIS
     Route: 065

REACTIONS (2)
  - Pulmonary embolism [Unknown]
  - Incorrect dose administered [Unknown]
